FAERS Safety Report 4486782-1 (Version None)
Quarter: 2004Q4

REPORT INFORMATION
  Report Type: 
  Country: None (occurrence: None)
  Receive Date: 20041027
  Receipt Date: 20041006
  Transmission Date: 20050328
  Serious: Yes (Life-Threatening, Hospitalization, Disabling)
  Sender: FDA-Public Use
  Company Number: US-MERCK-0410USA00955

PATIENT
  Age: 74 Year
  Sex: Male

DRUGS (3)
  1. VIOXX [Suspect]
     Indication: ARTHRITIS
     Route: 048
     Dates: start: 20000801, end: 20010101
  2. VIOXX [Suspect]
     Indication: PAIN
     Route: 048
     Dates: start: 20000801, end: 20010101
  3. DARVOCET-N 100 [Concomitant]
     Indication: PAIN
     Route: 065
     Dates: start: 19990101

REACTIONS (5)
  - ARTHRALGIA [None]
  - JOINT CREPITATION [None]
  - JOINT EFFUSION [None]
  - MYOCARDIAL INFARCTION [None]
  - NECK PAIN [None]
